FAERS Safety Report 14655175 (Version 2)
Quarter: 2018Q2

REPORT INFORMATION
  Report Type: Spontaneous
  Country: DE (occurrence: DE)
  Receive Date: 20180319
  Receipt Date: 20180411
  Transmission Date: 20180711
  Serious: Yes (Hospitalization)
  Sender: FDA-Public Use
  Company Number: PHHY2018DE044517

PATIENT
  Age: 26 Year
  Sex: Female
  Weight: 53 kg

DRUGS (3)
  1. QUETIAPINE. [Suspect]
     Active Substance: QUETIAPINE
     Indication: SLEEP DISORDER
     Dosage: 1 DF, QD (1-0-0)
     Route: 048
     Dates: start: 20180104
  2. TRENANTONE [Interacting]
     Active Substance: LEUPROLIDE ACETATE
     Indication: ENDOMETRIOSIS
     Dosage: 1 DF, Q3MO (ALLE 3 MONATE)
     Route: 058
     Dates: start: 20171011
  3. SERTRALINE [Interacting]
     Active Substance: SERTRALINE HYDROCHLORIDE
     Indication: DEPRESSION
     Dosage: 1 DF, QD (1-0-0)
     Route: 065
     Dates: start: 20180104, end: 20180120

REACTIONS (8)
  - Chills [Unknown]
  - Dyspnoea [Unknown]
  - Hypersensitivity [Unknown]
  - Cardiovascular disorder [Unknown]
  - Chest discomfort [Unknown]
  - Anxiety [Unknown]
  - Flushing [Unknown]
  - Paraesthesia [Unknown]

NARRATIVE: CASE EVENT DATE: 20180120
